FAERS Safety Report 8769644 (Version 1)
Quarter: 2012Q4

REPORT INFORMATION
  Report Type: 
  Country: US (occurrence: US)
  Receive Date: 20120905
  Receipt Date: 20120905
  Transmission Date: 20130627
  Serious: Yes (Other)
  Sender: FDA-Public Use
  Company Number: US-SANOFI-AVENTIS-2012SA061092

PATIENT
  Age: 60 Year
  Sex: Male

DRUGS (1)
  1. PLAVIX [Suspect]
     Indication: CORONARY STENT PLACEMENT
     Route: 048
     Dates: start: 201204

REACTIONS (1)
  - Colon cancer [Unknown]
